FAERS Safety Report 18795462 (Version 2)
Quarter: 2021Q1

REPORT INFORMATION
  Report Type: Spontaneous
  Country: IT (occurrence: IT)
  Receive Date: 20210127
  Receipt Date: 20210208
  Transmission Date: 20210419
  Serious: Yes (Other)
  Sender: FDA-Public Use
  Company Number: IT-MYLANLABS-2021M1004676

PATIENT
  Sex: Male

DRUGS (1)
  1. LEVODOPA+CARBIDOPA+ENTACAPONE/MYLAN F.C.TAB(125+31,25+200)MG/TAB [Suspect]
     Active Substance: CARBIDOPA\ENTACAPONE\LEVODOPA
     Indication: PARKINSON^S DISEASE
     Dosage: 4 TABLETS/24 MG, QD
     Route: 048
     Dates: start: 2016

REACTIONS (4)
  - Discomfort [Unknown]
  - Therapeutic product effect decreased [Unknown]
  - Dyspepsia [Recovered/Resolved]
  - Condition aggravated [Unknown]
